FAERS Safety Report 4785162-9 (Version None)
Quarter: 2005Q3

REPORT INFORMATION
  Report Type: 
  Country: None (occurrence: None)
  Receive Date: 20050929
  Receipt Date: 20050922
  Transmission Date: 20060218
  Serious: Yes (Other)
  Sender: FDA-Public Use
  Company Number: 200512912GDS

PATIENT
  Age: 30 Year
  Sex: Male

DRUGS (2)
  1. AVELOX [Suspect]
     Indication: PROSTATITIS
     Dosage: 400 MG, QD, ORAL
     Route: 048
     Dates: start: 20050801, end: 20050101
  2. GATIFLOXACIN [Concomitant]

REACTIONS (5)
  - PHOTOSENSITIVITY REACTION [None]
  - RASH [None]
  - SKIN DISCOLOURATION [None]
  - SKIN DISORDER [None]
  - SKIN NECROSIS [None]
